FAERS Safety Report 6890094-6 (Version None)
Quarter: 2010Q3

REPORT INFORMATION
  Report Type: 
  Country: None (occurrence: None)
  Receive Date: 20100730
  Receipt Date: 20080721
  Transmission Date: 20110219
  Serious: No
  Sender: FDA-Public Use
  Company Number: US-PFIZER INC-2008061167

PATIENT
  Sex: Male
  Weight: 76.2 kg

DRUGS (4)
  1. LIPITOR [Suspect]
     Indication: CARDIAC OPERATION
     Dates: start: 20070101
  2. TOPROL-XL [Concomitant]
     Indication: MUSCULOSKELETAL PAIN
  3. WARFARIN SODIUM [Concomitant]
  4. ACETYLSALICYLIC ACID SRT [Concomitant]

REACTIONS (1)
  - MUSCULOSKELETAL PAIN [None]
